FAERS Safety Report 20981637 (Version 1)
Quarter: 2022Q2

REPORT INFORMATION
  Report Type: Spontaneous
  Country: US (occurrence: US)
  Receive Date: 20220620
  Receipt Date: 20220620
  Transmission Date: 20220721
  Serious: Yes (Hospitalization, Other)
  Sender: FDA-Public Use
  Company Number: US-GLAXOSMITHKLINE-US2022GSK092223

PATIENT

DRUGS (15)
  1. ATOVAQUONE [Suspect]
     Active Substance: ATOVAQUONE
     Indication: Babesiosis
     Dosage: 750 MG, BID
  2. ATOVAQUONE [Suspect]
     Active Substance: ATOVAQUONE
     Dosage: 1250 MG (RAISED TO )
  3. ATOVAQUONE [Suspect]
     Active Substance: ATOVAQUONE
     Dosage: UNK
  4. ATOVAQUONE\PROGUANIL HYDROCHLORIDE [Suspect]
     Active Substance: ATOVAQUONE\PROGUANIL HYDROCHLORIDE
     Indication: Babesiosis
     Dosage: UNK, QD 1000/400 MG
  5. ATOVAQUONE\PROGUANIL HYDROCHLORIDE [Suspect]
     Active Substance: ATOVAQUONE\PROGUANIL HYDROCHLORIDE
     Dosage: UNK UNK, QD 500/200 MG
  6. CLINDAMYCIN [Suspect]
     Active Substance: CLINDAMYCIN
     Indication: Babesiosis
     Dosage: 600 MG, TID
  7. CLINDAMYCIN [Suspect]
     Active Substance: CLINDAMYCIN
     Dosage: 300 MG, TID
  8. QUININE SULFATE [Suspect]
     Active Substance: QUININE SULFATE
     Indication: Babesiosis
     Dosage: 648 MG, TID
  9. AZITHROMYCIN [Suspect]
     Active Substance: AZITHROMYCIN
     Indication: Babesiosis
     Dosage: 500 MG, 1D
  10. AZITHROMYCIN [Suspect]
     Active Substance: AZITHROMYCIN
     Dosage: 1000 MG, 1D, HIGH-DOSE
  11. RED BLOOD CELL TRANSFUSION [Concomitant]
     Indication: Anaemia
     Dosage: UNK
  12. RITUXIMAB [Concomitant]
     Active Substance: RITUXIMAB
     Indication: Monoclonal B-cell lymphocytosis
     Dosage: UNK
     Dates: start: 202012
  13. BENDAMUSTINE [Concomitant]
     Active Substance: BENDAMUSTINE
     Indication: Monoclonal B-cell lymphocytosis
     Dosage: UNK
     Dates: start: 202012
  14. TAFENOQUINE [Concomitant]
     Active Substance: TAFENOQUINE
     Indication: Babesiosis
     Dosage: 300 MG ON DAY 256
  15. TAFENOQUINE [Concomitant]
     Active Substance: TAFENOQUINE
     Dosage: 150 MG ON DAYS

REACTIONS (9)
  - Drug resistance [Unknown]
  - Abdominal discomfort [Unknown]
  - Nausea [Unknown]
  - Vomiting [Unknown]
  - Deafness [Unknown]
  - Dyspnoea exertional [Unknown]
  - Fatigue [Unknown]
  - Decreased appetite [Unknown]
  - Diarrhoea [Unknown]
